FAERS Safety Report 6661560-3 (Version None)
Quarter: 2010Q1

REPORT INFORMATION
  Report Type: 
  Country: None (occurrence: None)
  Receive Date: 20100331
  Receipt Date: 20100325
  Transmission Date: 20100710
  Serious: Yes (Other)
  Sender: FDA-Public Use
  Company Number: US-BAYER-201013565BCC

PATIENT
  Age: 23 Year
  Sex: Male
  Weight: 72 kg

DRUGS (1)
  1. BACTINE ANTISEPTIC ANESTHETIC ORIGINAL LIQUID [Suspect]
     Indication: ACCIDENTAL EXPOSURE
     Route: 047
     Dates: start: 20100325, end: 20100325

REACTIONS (5)
  - EYE BURNS [None]
  - EYE IRRITATION [None]
  - EYE PAIN [None]
  - EYE PRURITUS [None]
  - VISION BLURRED [None]
